FAERS Safety Report 17819710 (Version 1)
Quarter: 2020Q2

REPORT INFORMATION
  Report Type: Spontaneous
  Country: US (occurrence: US)
  Receive Date: 20200524
  Receipt Date: 20200524
  Transmission Date: 20200714
  Serious: Yes (Hospitalization, Other)
  Sender: FDA-Public Use
  Company Number: US-INGENUS PHARMACEUTICALS, LLC-2020INF000084

PATIENT
  Age: 62 Year
  Sex: Female

DRUGS (3)
  1. OXALIPLATIN. [Suspect]
     Active Substance: OXALIPLATIN
     Indication: GASTROINTESTINAL ADENOCARCINOMA
     Dosage: UNK
     Route: 065
  2. FLUOROURACIL. [Concomitant]
     Active Substance: FLUOROURACIL
     Indication: GASTROINTESTINAL ADENOCARCINOMA
     Dosage: UNK
     Route: 065
  3. LEUCOVORIN. [Concomitant]
     Active Substance: LEUCOVORIN
     Indication: GASTROINTESTINAL ADENOCARCINOMA
     Dosage: UNK
     Route: 065

REACTIONS (3)
  - Bronchiectasis [Unknown]
  - Interstitial lung disease [Unknown]
  - Pulmonary embolism [Unknown]
